FAERS Safety Report 5871264-2 (Version None)
Quarter: 2008Q3

REPORT INFORMATION
  Report Type: 
  Country: None (occurrence: None)
  Receive Date: 20080903
  Receipt Date: 20080903
  Transmission Date: 20090109
  Serious: Yes (Other)
  Sender: FDA-Public Use
  Company Number: None

PATIENT
  Sex: Male
  Weight: 68.9467 kg

DRUGS (1)
  1. DIVALPREX [Suspect]
     Indication: CONVULSION
     Dosage: 500MG TID

REACTIONS (1)
  - CONVULSION [None]
